FAERS Safety Report 8455535-1 (Version None)
Quarter: 2012Q2

REPORT INFORMATION
  Report Type: 
  Country: None (occurrence: None)
  Receive Date: 20120621
  Receipt Date: 20120615
  Transmission Date: 20120825
  Serious: Yes (Other)
  Sender: FDA-Public Use
  Company Number: GB-PFIZER INC-2012139607

PATIENT

DRUGS (1)
  1. SUNITINIB MALATE [Suspect]
     Dosage: UNK

REACTIONS (1)
  - PYODERMA GANGRENOSUM [None]
